FAERS Safety Report 15216008 (Version 5)
Quarter: 2018Q3

REPORT INFORMATION
  Report Type: Spontaneous
  Country: US (occurrence: US)
  Receive Date: 20180730
  Receipt Date: 20180830
  Transmission Date: 20181010
  Serious: Yes (Life-Threatening, Other)
  Sender: FDA-Public Use
  Company Number: US-PFIZER INC-2018301864

PATIENT
  Age: 65 Year
  Sex: Female

DRUGS (3)
  1. NEURONTIN [Suspect]
     Active Substance: GABAPENTIN
     Indication: ARTHRITIS
     Dosage: UNK
  2. NEURONTIN [Suspect]
     Active Substance: GABAPENTIN
     Indication: DIABETIC NEUROPATHY
  3. MIRAPEX [Concomitant]
     Active Substance: PRAMIPEXOLE DIHYDROCHLORIDE
     Indication: RESTLESS LEGS SYNDROME
     Dosage: 1 MG TABLET 1 TABLET IN THE MORNING BY MOUTH AND 1.5 TABLET BY MOUTH AT BEDTIME.)
     Route: 048

REACTIONS (9)
  - Somnolence [Recovering/Resolving]
  - Paraesthesia [Unknown]
  - Muscle spasms [Unknown]
  - Drug ineffective for unapproved indication [Unknown]
  - Muscle tightness [Unknown]
  - Formication [Unknown]
  - Fatigue [Unknown]
  - Pain in extremity [Unknown]
  - Pain [Unknown]
